FAERS Safety Report 21387476 (Version 1)
Quarter: 2022Q3

REPORT INFORMATION
  Report Type: Spontaneous
  Country: US (occurrence: US)
  Receive Date: 20220928
  Receipt Date: 20220928
  Transmission Date: 20221026
  Serious: No
  Sender: FDA-Public Use
  Company Number: US-BRISTOL-MYERS SQUIBB COMPANY-2022-113154

PATIENT
  Age: 77 Year
  Sex: Male

DRUGS (2)
  1. NIVOLUMAB [Suspect]
     Active Substance: NIVOLUMAB
     Indication: Lung carcinoma cell type unspecified stage 0
     Dosage: DOSE : 360 MG  OPDIVO , 51 MG YERVOY;     FREQ : EVERY 3 WEEKS
     Route: 042
     Dates: end: 20220909
  2. YERVOY [Suspect]
     Active Substance: IPILIMUMAB
     Indication: Lung carcinoma cell type unspecified stage 0
     Dosage: DOSE : 360 MG OPDIVO , 51 MG YERVOY; FREQ : EVERY 3 WEEKS
     Route: 042
     Dates: end: 20220909

REACTIONS (1)
  - Intentional product use issue [Unknown]
